FAERS Safety Report 6245735-3 (Version None)
Quarter: 2009Q2

REPORT INFORMATION
  Report Type: 
  Country: None (occurrence: None)
  Receive Date: 20090625
  Receipt Date: 20090618
  Transmission Date: 20091009
  Serious: Yes (Death)
  Sender: FDA-Public Use
  Company Number: PT-MERCK-0906PRT00005

PATIENT
  Sex: Male

DRUGS (1)
  1. CANCIDAS [Suspect]
     Indication: ACUTE GRAFT VERSUS HOST DISEASE
     Route: 065

REACTIONS (1)
  - DRUG INEFFECTIVE [None]
